FAERS Safety Report 15544631 (Version 1)
Quarter: 2018Q4

REPORT INFORMATION
  Report Type: Spontaneous
  Country: FR (occurrence: FR)
  Receive Date: 20181024
  Receipt Date: 20181024
  Transmission Date: 20190205
  Serious: Yes (Death, Life-Threatening, Hospitalization)
  Sender: FDA-Public Use
  Company Number: FR-TEVA-2018-FR-967939

PATIENT
  Age: 66 Year
  Sex: Male
  Weight: 73 kg

DRUGS (9)
  1. MK-8228 ATU 240 MG, COMPRIM? PELLICUL? [Suspect]
     Active Substance: LETERMOVIR
     Indication: ANTIVIRAL PROPHYLAXIS
     Dosage: NOT KNOWN
     Route: 048
     Dates: start: 20180828
  2. ENDOXAN [Suspect]
     Active Substance: CYCLOPHOSPHAMIDE
     Indication: TRANSPLANT
     Dosage: 1059 MG OR 3650 MG PER DAY
     Route: 042
     Dates: start: 20180815, end: 20180825
  3. FLUDARABINE TEVA [Suspect]
     Active Substance: FLUDARABINE PHOSPHATE
     Indication: ACUTE MYELOID LEUKAEMIA
     Dosage: 55 MILLIGRAM DAILY;
     Route: 042
     Dates: start: 20180815, end: 20180819
  4. CELLCEPT [Suspect]
     Active Substance: MYCOPHENOLATE MOFETIL\MYCOPHENOLATE MOFETIL HYDROCHLORIDE
     Indication: TRANSPLANT
     Route: 042
     Dates: start: 20180826, end: 20180830
  5. CYTARABINE EBEWE [Suspect]
     Active Substance: CYTARABINE
     Indication: ACUTE MYELOID LEUKAEMIA
     Route: 041
     Dates: start: 20180506, end: 20180728
  6. SANDIMMUN 50 MG/ML, SOLUTION INJECTABLE POUR PERFUSION I.V. [Suspect]
     Active Substance: CYCLOSPORINE
     Indication: TRANSPLANT
     Dosage: INJECTION SOLUTION FOR I.V. INFUSION
     Dates: start: 20180826, end: 20180830
  7. MESNA EG 100 MG/ML, SOLUTION INJECTABLE POUR PERFUSION [Concomitant]
     Active Substance: MESNA
     Route: 065
  8. CYTARABINE EG [Suspect]
     Active Substance: CYTARABINE
     Indication: ACUTE MYELOID LEUKAEMIA
     Dosage: ONE WEEK PER MONTH
     Route: 042
     Dates: start: 20170128, end: 20170501
  9. ZAVEDOS [Suspect]
     Active Substance: IDARUBICIN
     Indication: ACUTE MYELOID LEUKAEMIA
     Dosage: 22 MILLIGRAM DAILY;
     Route: 041
     Dates: start: 20180505, end: 20180707

REACTIONS (3)
  - Cardiac failure acute [Recovered/Resolved]
  - Acute kidney injury [Not Recovered/Not Resolved]
  - Atrial fibrillation [Recovered/Resolved]

NARRATIVE: CASE EVENT DATE: 20180830
